FAERS Safety Report 5702917-4 (Version None)
Quarter: 2008Q2

REPORT INFORMATION
  Report Type: 
  Country: None (occurrence: None)
  Receive Date: 20080408
  Receipt Date: 20080327
  Transmission Date: 20081010
  Serious: Yes (Death, Other)
  Sender: FDA-Public Use
  Company Number: GXKR2008CA02852

PATIENT
  Age: 8 Month
  Sex: Male

DRUGS (4)
  1. METHYLPREDNISOLONE [Suspect]
     Indication: GRAFT VERSUS HOST DISEASE
     Dosage: CUMULATIVE DOSE OF 429.3 MG/KG
  2. CYCLOSPORINE [Concomitant]
  3. AMLODIPINE [Concomitant]
  4. NADOLOL [Concomitant]

REACTIONS (8)
  - GENERAL PHYSICAL HEALTH DETERIORATION [None]
  - HYPERTENSION [None]
  - MYOCARDITIS [None]
  - MYOSITIS [None]
  - PYREXIA [None]
  - TOXIC SHOCK SYNDROME [None]
  - VENTRICULAR HYPERTROPHY [None]
  - VOMITING [None]
